FAERS Safety Report 5848264-1 (Version None)
Quarter: 2008Q3

REPORT INFORMATION
  Report Type: 
  Country: None (occurrence: None)
  Receive Date: 20080818
  Receipt Date: 20080806
  Transmission Date: 20090109
  Serious: Yes (Hospitalization)
  Sender: FDA-Public Use
  Company Number: JP-ASTRAZENECA-2008AP05599

PATIENT
  Age: 6320 Day
  Sex: Male

DRUGS (2)
  1. SEROQUEL [Suspect]
     Indication: SCHIZOPHRENIA
     Route: 048
     Dates: end: 20080713
  2. PAXIL [Concomitant]
     Indication: DEPRESSION
     Route: 048
     Dates: end: 20080713

REACTIONS (1)
  - ALTERED STATE OF CONSCIOUSNESS [None]
